FAERS Safety Report 23892376 (Version 2)
Quarter: 2024Q2

REPORT INFORMATION
  Report Type: Report from Study
  Country: US (occurrence: US)
  Receive Date: 20240524
  Receipt Date: 20240528
  Transmission Date: 20240716
  Serious: Yes (Life-Threatening, Hospitalization)
  Sender: FDA-Public Use
  Company Number: US-SA-SAC20230517000946

PATIENT
  Age: 42 Year
  Sex: Female
  Weight: 105 kg

DRUGS (7)
  1. DUPILUMAB [Suspect]
     Active Substance: DUPILUMAB
     Indication: Chronic rhinosinusitis with nasal polyps
     Dosage: 300 MG, 1X
     Route: 058
     Dates: start: 20230123, end: 20230123
  2. DUPILUMAB [Suspect]
     Active Substance: DUPILUMAB
     Dosage: 300 MG, QOW
     Route: 058
     Dates: start: 20231115
  3. MONTELUKAST [Concomitant]
     Active Substance: MONTELUKAST SODIUM
     Indication: Asthma
     Dosage: 10 MG, QD
     Route: 048
     Dates: start: 20221002
  4. FLUTICASONE [Concomitant]
     Active Substance: FLUTICASONE
     Indication: Asthma
     Dosage: 500 UG, QD
     Route: 055
     Dates: start: 20221005
  5. ALBUTEROL [Concomitant]
     Active Substance: ALBUTEROL
     Indication: Asthma
     Dosage: 90 UG, QD
     Route: 055
     Dates: start: 20221005
  6. ALLOPURINOL [Concomitant]
     Active Substance: ALLOPURINOL
     Indication: Psoriasis
     Dosage: 100 MG, QD
     Route: 048
     Dates: start: 20221005
  7. CLOPIDOGREL [Concomitant]
     Active Substance: CLOPIDOGREL BISULFATE
     Indication: Heart disease congenital
     Dosage: 75 MG, QD
     Route: 048
     Dates: start: 20170310

REACTIONS (4)
  - Left ventricular failure [Recovering/Resolving]
  - Left ventricular failure [Recovered/Resolved]
  - Injection site reaction [Recovered/Resolved]
  - Peripheral swelling [Recovered/Resolved]

NARRATIVE: CASE EVENT DATE: 20230416
